FAERS Safety Report 10032528 (Version 2)
Quarter: 2014Q2

REPORT INFORMATION
  Report Type: Spontaneous
  Country: US (occurrence: US)
  Receive Date: 20140324
  Receipt Date: 20140410
  Transmission Date: 20141212
  Serious: Yes (Hospitalization)
  Sender: FDA-Public Use
  Company Number: US-BRISTOL-MYERS SQUIBB COMPANY-20473310

PATIENT
  Age: 80 Year
  Sex: Male
  Weight: 102.04 kg

DRUGS (10)
  1. COUMADIN [Suspect]
     Indication: ATRIAL FIBRILLATION
     Route: 048
  2. DILTIAZEM HCL [Concomitant]
  3. DIGOXIN [Concomitant]
  4. FUROSEMIDE [Concomitant]
  5. GUAIFENESIN [Concomitant]
  6. ASPIRIN [Concomitant]
  7. CRESTOR [Concomitant]
  8. VITAMIN [Concomitant]
  9. SAW PALMETTO [Concomitant]
  10. ZINC [Concomitant]

REACTIONS (4)
  - Aortic aneurysm [Unknown]
  - Stent placement [Unknown]
  - Contusion [Unknown]
  - Pruritus [Unknown]
